FAERS Safety Report 4688884-3 (Version None)
Quarter: 2005Q2

REPORT INFORMATION
  Report Type: 
  Country: None (occurrence: None)
  Receive Date: 20050602
  Receipt Date: 20050517
  Transmission Date: 20051028
  Serious: Yes (Hospitalization)
  Sender: FDA-Public Use
  Company Number: SAGL-ZLB/05/44/FRA

PATIENT
  Age: 2 Year
  Sex: Female

DRUGS (1)
  1. SANDOGLOBULIN [Suspect]
     Indication: HYPOGAMMAGLOBULINAEMIA
     Dosage: 6 G, I.V.
     Route: 042
     Dates: start: 20050502, end: 20050502

REACTIONS (6)
  - ABDOMINAL PAIN [None]
  - ANAPHYLACTOID REACTION [None]
  - BLOOD CULTURE POSITIVE [None]
  - BLOOD PRESSURE DECREASED [None]
  - HYPERTHERMIA [None]
  - MALAISE [None]
